FAERS Safety Report 23888347 (Version 1)
Quarter: 2024Q2

REPORT INFORMATION
  Report Type: Spontaneous
  Country: US (occurrence: None)
  Receive Date: 20240522
  Receipt Date: 20240522
  Transmission Date: 20240716
  Serious: No
  Sender: FDA-Public Use
  Company Number: None

PATIENT

DRUGS (1)
  1. TIRZEPATIDE [Suspect]
     Active Substance: TIRZEPATIDE

REACTIONS (6)
  - Legal problem [None]
  - Product dispensing error [None]
  - Product distribution issue [None]
  - Product use issue [None]
  - Blood glucose abnormal [None]
  - Victim of abuse [None]
